FAERS Safety Report 20141701 (Version 1)
Quarter: 2021Q4

REPORT INFORMATION
  Report Type: Spontaneous
  Country: US (occurrence: US)
  Receive Date: 20211202
  Receipt Date: 20211202
  Transmission Date: 20220303
  Serious: No
  Sender: FDA-Public Use
  Company Number: US-Teikoku Pharma USA-TPU2021-01112

PATIENT
  Age: 64 Year
  Sex: Female
  Weight: 61.23 kg

DRUGS (3)
  1. LIDODERM [Suspect]
     Active Substance: LIDOCAINE
     Indication: Vaccination complication
     Route: 061
  2. ACETAMINOPHEN [Suspect]
     Active Substance: ACETAMINOPHEN
     Indication: Vaccination complication
  3. IBUPROFEN [Suspect]
     Active Substance: IBUPROFEN
     Indication: Vaccination complication

REACTIONS (1)
  - Drug ineffective for unapproved indication [Unknown]
